FAERS Safety Report 14540218 (Version 2)
Quarter: 2018Q1

REPORT INFORMATION
  Report Type: Spontaneous
  Country: PT (occurrence: PT)
  Receive Date: 20180216
  Receipt Date: 20180320
  Transmission Date: 20180509
  Serious: Yes (Disabling)
  Sender: FDA-Public Use
  Company Number: PT-MYLANLABS-2018M1010295

PATIENT
  Sex: Female

DRUGS (5)
  1. CLAVAMOX DT [Suspect]
     Active Substance: AMOXICILLIN\CLAVULANIC ACID
     Indication: TOOTH INFECTION
     Dosage: 1000 MG, UNK
     Route: 048
  2. BRUFEN? [Suspect]
     Active Substance: IBUPROFEN
     Indication: TOOTH INFECTION
     Dosage: 1800 MG, QD
     Route: 048
     Dates: start: 20171213, end: 20171214
  3. OLANZAPINE. [Concomitant]
     Active Substance: OLANZAPINE
     Indication: PRODUCT USED FOR UNKNOWN INDICATION
     Dosage: UNK
  4. BRUFEN? [Suspect]
     Active Substance: IBUPROFEN
     Indication: ORAL INFECTION
  5. CLAVAMOX DT [Suspect]
     Active Substance: AMOXICILLIN\CLAVULANIC ACID
     Indication: ORAL INFECTION
     Dosage: 2000 MG, QD
     Dates: start: 20171214, end: 20171214

REACTIONS (2)
  - Oedema [Recovered/Resolved]
  - Pain [Recovered/Resolved]

NARRATIVE: CASE EVENT DATE: 20171114
